FAERS Safety Report 4836738-1 (Version None)
Quarter: 2005Q4

REPORT INFORMATION
  Report Type: 
  Country: None (occurrence: None)
  Receive Date: 20051123
  Receipt Date: 20041122
  Transmission Date: 20060501
  Serious: Yes (Hospitalization)
  Sender: FDA-Public Use
  Company Number: US-MERCK-0411USA03561

PATIENT
  Age: 59 Year
  Sex: Female
  Weight: 70 kg

DRUGS (9)
  1. VIOXX [Suspect]
     Indication: BACK PAIN
     Route: 048
     Dates: start: 19990101, end: 20031001
  2. VIOXX [Suspect]
     Route: 048
  3. XANAX [Concomitant]
     Route: 065
  4. EFFEXOR XR [Concomitant]
     Route: 065
  5. ELAVIL [Concomitant]
     Route: 065
  6. TENORMIN [Concomitant]
     Route: 065
  7. PLAVIX [Concomitant]
     Route: 065
  8. ASPIRIN [Concomitant]
     Route: 065
  9. ZOCOR [Concomitant]
     Route: 065

REACTIONS (21)
  - ACUTE MYOCARDIAL INFARCTION [None]
  - ADVERSE EVENT [None]
  - BLOOD PRESSURE FLUCTUATION [None]
  - CEREBROVASCULAR ACCIDENT [None]
  - CHEST PAIN [None]
  - CORONARY ARTERY DISEASE [None]
  - DIZZINESS [None]
  - DYSPNOEA [None]
  - ECCHYMOSIS [None]
  - EMBOLISM [None]
  - FATIGUE [None]
  - HAEMATOMA [None]
  - HAEMORRHAGE [None]
  - HYPERLIPIDAEMIA [None]
  - HYPERTENSION [None]
  - INGUINAL HERNIA [None]
  - INGUINAL HERNIA REPAIR [None]
  - NAUSEA [None]
  - SPINAL DISORDER [None]
  - SWELLING [None]
  - WEIGHT INCREASED [None]
